FAERS Safety Report 4471081-4 (Version None)
Quarter: 2004Q4

REPORT INFORMATION
  Report Type: 
  Country: None (occurrence: None)
  Receive Date: 20041011
  Receipt Date: 20040928
  Transmission Date: 20050328
  Serious: Yes (Other)
  Sender: FDA-Public Use
  Company Number: PHHO2004US13712

PATIENT
  Sex: Male
  Weight: 115 kg

DRUGS (3)
  1. CGP 57148B [Suspect]
     Indication: PROSTATE CANCER
     Dosage: 400 MG, BID
     Route: 048
     Dates: start: 20040720, end: 20040909
  2. ADVIL [Concomitant]
     Dosage: UNK, PRN
  3. MULTI-VITAMINS [Concomitant]

REACTIONS (6)
  - CHILLS [None]
  - CRANIAL NEUROPATHY [None]
  - EYELID PTOSIS [None]
  - PYREXIA [None]
  - RASH [None]
  - REFUSAL OF TREATMENT BY PATIENT [None]
